FAERS Safety Report 5950932-8 (Version None)
Quarter: 2008Q4

REPORT INFORMATION
  Report Type: 
  Country: None (occurrence: None)
  Receive Date: 20081112
  Receipt Date: 20081110
  Transmission Date: 20090506
  Serious: Yes (Death)
  Sender: FDA-Public Use
  Company Number: ES-ABBOTT-08P-144-0486426-00

PATIENT
  Age: 57 Year
  Sex: Male

DRUGS (4)
  1. PANTOMICINA [Suspect]
     Indication: TONSILLITIS
     Route: 048
     Dates: start: 20080924
  2. IBUPROFEN TABLETS [Suspect]
     Indication: DRUG USE FOR UNKNOWN INDICATION
     Route: 048
     Dates: start: 20080924
  3. METHYLPREDNISOLONE SODIUM SUCCINATE [Suspect]
     Indication: DRUG USE FOR UNKNOWN INDICATION
     Route: 042
     Dates: start: 20080924
  4. METHYLPREDNISOLONE 16MG TAB [Suspect]
     Indication: DRUG USE FOR UNKNOWN INDICATION
     Route: 030
     Dates: start: 20080924

REACTIONS (8)
  - CHILLS [None]
  - COMA [None]
  - DRUG HYPERSENSITIVITY [None]
  - DYSPNOEA [None]
  - LARYNGEAL OEDEMA [None]
  - MALAISE [None]
  - ODYNOPHAGIA [None]
  - PYREXIA [None]
